FAERS Safety Report 18969377 (Version 1)
Quarter: 2021Q1

REPORT INFORMATION
  Report Type: Spontaneous
  Country: CA (occurrence: CA)
  Receive Date: 20210304
  Receipt Date: 20210304
  Transmission Date: 20210420
  Serious: Yes (Other)
  Sender: FDA-Public Use
  Company Number: CA-JNJFOC-20210247563

PATIENT
  Sex: Male
  Weight: 91 kg

DRUGS (4)
  1. HYDROXYCHLOROQUINE [Concomitant]
     Active Substance: HYDROXYCHLOROQUINE
     Indication: PLEURISY
     Route: 065
  2. RENFLEXIS [Suspect]
     Active Substance: INFLIXIMAB-ABDA
     Indication: CROHN^S DISEASE
     Dosage: SINGLE USE VIAL
     Route: 042
  3. CELECOXIB. [Concomitant]
     Active Substance: CELECOXIB
     Indication: PLEURISY
     Route: 065
  4. REMICADE [Suspect]
     Active Substance: INFLIXIMAB
     Indication: PRODUCT USED FOR UNKNOWN INDICATION
     Route: 042

REACTIONS (4)
  - General physical health deterioration [Unknown]
  - Lupus-like syndrome [Unknown]
  - Product use issue [Unknown]
  - Hypertension [Unknown]
